FAERS Safety Report 16881784 (Version 3)
Quarter: 2020Q1

REPORT INFORMATION
  Report Type: Spontaneous
  Country: CA (occurrence: CA)
  Receive Date: 20191003
  Receipt Date: 20200305
  Transmission Date: 20200409
  Serious: Yes (Other)
  Sender: FDA-Public Use
  Company Number: CA-TEVA-2019-CA-1116640

PATIENT
  Sex: Female
  Weight: 3 kg

DRUGS (13)
  1. NICOTINE. [Suspect]
     Active Substance: NICOTINE
     Indication: EXPOSURE DURING PREGNANCY
     Route: 064
  2. CITALOPRAM [Suspect]
     Active Substance: CITALOPRAM HYDROBROMIDE
     Indication: EXPOSURE VIA BREAST MILK
     Dosage: 20 MILLIGRAM DAILY;
     Route: 064
  3. NICOTINE. [Suspect]
     Active Substance: NICOTINE
     Indication: PRODUCT USED FOR UNKNOWN INDICATION
  4. BUPRENORPHINE/NALOXONE [Suspect]
     Active Substance: BUPRENORPHINE\NALOXONE
     Route: 063
  5. BUPRENORPHINE HYDROCHLORIDE. [Suspect]
     Active Substance: BUPRENORPHINE HYDROCHLORIDE
     Indication: EXPOSURE VIA BREAST MILK
     Route: 064
  6. NICOTINE. [Suspect]
     Active Substance: NICOTINE
     Indication: EXPOSURE VIA BREAST MILK
     Route: 063
  7. CITALOPRAM [Suspect]
     Active Substance: CITALOPRAM HYDROBROMIDE
     Indication: EXPOSURE DURING PREGNANCY
     Dosage: 20 MILLIGRAM DAILY;
     Route: 063
  8. CITALOPRAM [Suspect]
     Active Substance: CITALOPRAM HYDROBROMIDE
     Indication: DEPRESSION
  9. BUPRENORPHINE/NALOXONE [Suspect]
     Active Substance: BUPRENORPHINE\NALOXONE
     Indication: DRUG DEPENDENCE
     Route: 064
  10. OXYCODONE-ACETAMINOPHEN [Suspect]
     Active Substance: ACETAMINOPHEN\OXYCODONE HYDROCHLORIDE
     Indication: EXPOSURE DURING PREGNANCY
     Route: 064
  11. BUPRENORPHINE HYDROCHLORIDE. [Suspect]
     Active Substance: BUPRENORPHINE HYDROCHLORIDE
     Indication: EXPOSURE DURING PREGNANCY
     Route: 064
  12. BUPRENORPHINE HYDROCHLORIDE. [Suspect]
     Active Substance: BUPRENORPHINE HYDROCHLORIDE
     Route: 063
  13. ACETAMINOPHEN/OXYCODONE HYDROCHLORIDE/OXYCODONE TEREPHTHALATE [Suspect]
     Active Substance: ACETAMINOPHEN\OXYCODONE HYDROCHLORIDE\OXYCODONE TEREPHTHALATE
     Indication: EXPOSURE DURING PREGNANCY
     Route: 064

REACTIONS (7)
  - Drug withdrawal syndrome neonatal [Recovered/Resolved]
  - Foetal exposure during pregnancy [Recovered/Resolved]
  - Maternal exposure during breast feeding [Recovered/Resolved]
  - Poor feeding infant [Recovered/Resolved]
  - Exposure via breast milk [Recovered/Resolved]
  - Neonatal respiratory distress [Recovered/Resolved]
  - Pregnancy [Recovered/Resolved]
